FAERS Safety Report 5906483-X (Version None)
Quarter: 2008Q4

REPORT INFORMATION
  Report Type: 
  Country: None (occurrence: None)
  Receive Date: 20081002
  Receipt Date: 20080926
  Transmission Date: 20090506
  Serious: Yes (Hospitalization)
  Sender: FDA-Public Use
  Company Number: FR-B.I. PHARMACEUTICALS,INC./RIDGEFIELD-2008-FF-00580FF

PATIENT
  Sex: Male

DRUGS (14)
  1. MECIR LP 0.4 [Suspect]
     Indication: BENIGN PROSTATIC HYPERPLASIA
     Dosage: .4MG
     Route: 048
     Dates: start: 20080613, end: 20080706
  2. ZYLORIC [Concomitant]
     Dosage: 100MG
     Route: 048
     Dates: start: 20080521, end: 20080623
  3. ZYLORIC [Concomitant]
     Dosage: 300MG
     Route: 048
     Dates: start: 20080702, end: 20080705
  4. NEXIUM [Concomitant]
     Dosage: 40MG
     Route: 048
     Dates: start: 20080521, end: 20080701
  5. THALIDOMIDE [Concomitant]
     Indication: MULTIPLE MYELOMA
     Dosage: 100MG
     Route: 048
     Dates: start: 20080609, end: 20080627
  6. THALIDOMIDE [Concomitant]
     Dosage: 100MG
     Route: 048
     Dates: start: 20080701, end: 20080704
  7. OROKEN [Concomitant]
     Indication: INFECTION PROPHYLAXIS
     Route: 048
     Dates: start: 20080609, end: 20080704
  8. PROSCAR [Concomitant]
     Indication: BENIGN PROSTATIC HYPERPLASIA
     Route: 048
     Dates: start: 20080613, end: 20080620
  9. ARANESP [Concomitant]
     Dosage: 60MCG
     Dates: start: 20080522
  10. EPREX [Concomitant]
  11. STILNOX [Concomitant]
  12. ROCEPHIN [Concomitant]
     Indication: URINARY TRACT INFECTION
     Dates: start: 20080616, end: 20080620
  13. OFLOCET [Concomitant]
     Indication: URINARY TRACT INFECTION
     Dates: start: 20080618, end: 20080623
  14. ASPEGIC 325 [Concomitant]
     Indication: MULTIPLE MYELOMA
     Dates: start: 20080609

REACTIONS (2)
  - DRUG RASH WITH EOSINOPHILIA AND SYSTEMIC SYMPTOMS [None]
  - VARICELLA [None]
